FAERS Safety Report 4876998-4 (Version None)
Quarter: 2005Q4

REPORT INFORMATION
  Report Type: 
  Country: None (occurrence: None)
  Receive Date: 20051206
  Receipt Date: 20050913
  Transmission Date: 20060501
  Serious: No
  Sender: FDA-Public Use
  Company Number: USA0509108008

PATIENT
  Age: 65 Year
  Sex: Female

DRUGS (6)
  1. CYMBALTA [Suspect]
     Indication: NEUROPATHY PERIPHERAL
     Dosage: 30 MG DAY
     Dates: start: 20050101
  2. ATENOLOL [Concomitant]
  3. NORVASC [Concomitant]
  4. MONOPRIL [Concomitant]
  5. AMARYL [Concomitant]
  6. METFORMIN [Concomitant]

REACTIONS (1)
  - HERPES ZOSTER [None]
